FAERS Safety Report 5744855-7 (Version None)
Quarter: 2008Q2

REPORT INFORMATION
  Report Type: 
  Country: None (occurrence: None)
  Receive Date: 20080516
  Receipt Date: 20080506
  Transmission Date: 20081010
  Serious: Yes (Other)
  Sender: FDA-Public Use
  Company Number: E2020-02715-SPO-BE

PATIENT
  Age: 76 Year
  Sex: Female

DRUGS (1)
  1. ARICEPT [Suspect]
     Indication: DEMENTIA ALZHEIMER'S TYPE
     Dosage: 5 MG, 1 IN 1 D, ORAL
     Route: 048
     Dates: start: 20080101, end: 20080401

REACTIONS (7)
  - CARDIAC DISORDER [None]
  - CHILLS [None]
  - COMA [None]
  - GASTRITIS [None]
  - HEADACHE [None]
  - INSOMNIA [None]
  - LIVER FUNCTION TEST ABNORMAL [None]
